FAERS Safety Report 5958670-2 (Version None)
Quarter: 2008Q4

REPORT INFORMATION
  Report Type: 
  Country: None (occurrence: None)
  Receive Date: 20081119
  Receipt Date: 20081107
  Transmission Date: 20090506
  Serious: Yes (Hospitalization)
  Sender: FDA-Public Use
  Company Number: DE-AMGEN-UK316226

PATIENT
  Sex: Male

DRUGS (4)
  1. PANITUMUMAB [Suspect]
     Indication: SQUAMOUS CELL CARCINOMA
     Route: 042
     Dates: start: 20081002
  2. PANITUMUMAB - STUDY PROCEDURE [Suspect]
  3. CISPLATIN [Suspect]
  4. UNSPECIFIED RADIATION THERAPY [Concomitant]

REACTIONS (1)
  - PYREXIA [None]
